FAERS Safety Report 4447766-2 (Version None)
Quarter: 2004Q3

REPORT INFORMATION
  Report Type: 
  Country: None (occurrence: None)
  Receive Date: 20040913
  Receipt Date: 20040901
  Transmission Date: 20050211
  Serious: Yes (Other)
  Sender: FDA-Public Use
  Company Number: 200416639US

PATIENT
  Age: 90 Year
  Sex: Female

DRUGS (3)
  1. CARAC [Suspect]
     Dosage: DOSE: UNKNOWN
  2. FUROSEMIDE [Concomitant]
     Dosage: DOSE: UNKNOWN
  3. NORVASC [Concomitant]
     Dosage: DOSE: UNKNOWN

REACTIONS (4)
  - CELLULITIS [None]
  - MEDICATION ERROR [None]
  - SCAB [None]
  - SKIN DISORDER [None]
